FAERS Safety Report 20623364 (Version 1)
Quarter: 2022Q1

REPORT INFORMATION
  Report Type: Spontaneous
  Country: US (occurrence: None)
  Receive Date: 20220322
  Receipt Date: 20220322
  Transmission Date: 20220423
  Serious: No
  Sender: FDA-Public Use
  Company Number: None

PATIENT

DRUGS (3)
  1. HEPARIN SODIUM [Suspect]
     Active Substance: HEPARIN SODIUM
  2. ATIVAN [Suspect]
     Active Substance: LORAZEPAM
  3. CALCIUM CHLORIDE [Suspect]
     Active Substance: CALCIUM CHLORIDE

REACTIONS (5)
  - Product deposit [None]
  - Device occlusion [None]
  - Device difficult to use [None]
  - Poor quality product administered [None]
  - Drug chemical incompatibility [None]
